FAERS Safety Report 6065221-3 (Version None)
Quarter: 2009Q1

REPORT INFORMATION
  Report Type: 
  Country: None (occurrence: None)
  Receive Date: 20090204
  Receipt Date: 20090121
  Transmission Date: 20090719
  Serious: Yes (Hospitalization)
  Sender: FDA-Public Use
  Company Number: PHHY2009JP02274

PATIENT
  Sex: Male
  Weight: 67 kg

DRUGS (6)
  1. DIOVAN [Suspect]
     Indication: HYPERTENSION
     Dosage: 80 MG, QD
     Route: 048
     Dates: start: 20071015
  2. MELBIN [Concomitant]
     Dosage: 750 MG/DAY
     Route: 048
     Dates: start: 20070921, end: 20080218
  3. GLIMICRON [Concomitant]
     Dosage: 20 MG/DAY
     Route: 048
     Dates: start: 20070912, end: 20071015
  4. ASPIRIN [Concomitant]
     Dosage: 100 MG/DAY
     Route: 048
     Dates: start: 20080820
  5. LIPITOR [Concomitant]
     Dosage: 10 MG/DAY
     Route: 048
     Dates: start: 20080820
  6. PANALDINE [Concomitant]
     Dosage: 200 MG/DAY
     Route: 048
     Dates: start: 20080820

REACTIONS (3)
  - ANGINA PECTORIS [None]
  - ARTERIAL STENOSIS [None]
  - PERCUTANEOUS CORONARY INTERVENTION [None]
